FAERS Safety Report 8422853-2 (Version None)
Quarter: 2012Q2

REPORT INFORMATION
  Report Type: 
  Country: None (occurrence: None)
  Receive Date: 20120608
  Receipt Date: 20120531
  Transmission Date: 20120825
  Serious: Yes (Death, Hospitalization)
  Sender: FDA-Public Use
  Company Number: US-GLAXOSMITHKLINE-A0871922A

PATIENT
  Age: 72 Year
  Sex: Female

DRUGS (4)
  1. HYZAAR [Concomitant]
  2. INSULIN [Concomitant]
  3. AVANDIA [Suspect]
     Indication: DIABETES MELLITUS
     Dosage: 4MG PER DAY
     Route: 048
     Dates: start: 20010131, end: 20050113
  4. LIPITOR [Concomitant]

REACTIONS (7)
  - ATRIAL FIBRILLATION [None]
  - CEREBRAL INFARCTION [None]
  - PARTIAL SEIZURES [None]
  - WEIGHT INCREASED [None]
  - CEREBROVASCULAR ACCIDENT [None]
  - SUBDURAL HAEMATOMA [None]
  - CARDIAC FAILURE CONGESTIVE [None]
